FAERS Safety Report 7948512-8 (Version None)
Quarter: 2011Q4

REPORT INFORMATION
  Report Type: 
  Country: None (occurrence: None)
  Receive Date: 20111123
  Receipt Date: 20111118
  Transmission Date: 20120403
  Serious: Yes (Hospitalization, Other)
  Sender: FDA-Public Use
  Company Number: AUR-APL-2011-04688

PATIENT
  Age: 69 Year
  Sex: Female
  Weight: 75 kg

DRUGS (5)
  1. HJERTEMAGNYL ^DAK^ (ALBYL-ENTEROSOLUBILE) [Concomitant]
  2. CENTYL MED KALIUMKLORID (SALURES-K) [Concomitant]
  3. SIMVASTATIN [Suspect]
     Indication: HYPERCHOLESTEROLAEMIA
     Dosage: ORAL
     Route: 048
     Dates: start: 20090101
  4. POTASSIUM CHLORIDE [Concomitant]
  5. TASIGNA [Suspect]
     Indication: CHRONIC MYELOID LEUKAEMIA
     Dosage: 800 MG (400 MG, 2 IN 1 D)
     Dates: start: 20090809, end: 20110803

REACTIONS (8)
  - FLUID RETENTION [None]
  - ATRIAL FIBRILLATION [None]
  - WEIGHT INCREASED [None]
  - BLOOD SODIUM DECREASED [None]
  - DRUG INTERACTION [None]
  - CARDIAC FAILURE [None]
  - BLOOD POTASSIUM DECREASED [None]
  - HAEMOGLOBIN DECREASED [None]
